FAERS Safety Report 4702042-5 (Version None)
Quarter: 2005Q2

REPORT INFORMATION
  Report Type: 
  Country: None (occurrence: None)
  Receive Date: 20050627
  Receipt Date: 20050618
  Transmission Date: 20051028
  Serious: Yes (Other)
  Sender: FDA-Public Use
  Company Number: 2005033715

PATIENT
  Age: 73 Year
  Sex: Male
  Weight: 99.7913 kg

DRUGS (7)
  1. LIPITOR [Suspect]
     Indication: BLOOD TRIGLYCERIDES INCREASED
     Dosage: (20 MG), ORAL
     Route: 048
  2. LOPID [Suspect]
     Indication: ILL-DEFINED DISORDER
  3. TRICOLR (FENOFIBRATE) [Suspect]
     Indication: ILL-DEFINED DISORDER
  4. MEVACOR [Concomitant]
     Indication: ILL-DEFINED DISORDER
  5. VALSARTAN [Suspect]
     Indication: ILL-DEFINED DISORDER
     Dosage: 240 MG (80 MG, 1 IN 1 3 D)
  6. ALL OTHER THERAPEUTIC PRODUCTS (ALL OTHERTHERAPEUTIC PRODUCTS) [Suspect]
     Indication: ILL-DEFINED DISORDER
  7. KLONOPIN [Concomitant]

REACTIONS (15)
  - ANGIOPATHY [None]
  - ARTHRALGIA [None]
  - ASTHENIA [None]
  - ATRIOVENTRICULAR BLOCK SECOND DEGREE [None]
  - BACK PAIN [None]
  - BLOOD TRIGLYCERIDES INCREASED [None]
  - CARDIOVASCULAR DISORDER [None]
  - CORONARY ARTERY DISEASE [None]
  - DRUG INTOLERANCE [None]
  - FATIGUE [None]
  - IRRITABLE BOWEL SYNDROME [None]
  - MUSCULAR WEAKNESS [None]
  - MYALGIA [None]
  - OVERDOSE [None]
  - PHARMACEUTICAL PRODUCT COMPLAINT [None]
